FAERS Safety Report 5031647-X (Version None)
Quarter: 2006Q2

REPORT INFORMATION
  Report Type: 
  Country: None (occurrence: None)
  Receive Date: 20060616
  Receipt Date: 20060607
  Transmission Date: 20061013
  Serious: Yes (Hospitalization)
  Sender: FDA-Public Use
  Company Number: 233607K06USA

PATIENT
  Age: 57 Year
  Sex: Male

DRUGS (1)
  1. REBIF [Suspect]
     Indication: MULTIPLE SCLEROSIS
     Dosage: 8.8 MCG, ONCE, NOT REPORTED
     Dates: start: 20060517, end: 20060517

REACTIONS (5)
  - BLISTER [None]
  - PENILE SWELLING [None]
  - RASH PRURITIC [None]
  - SKIN EXFOLIATION [None]
  - SKIN REACTION [None]
